FAERS Safety Report 6701086-1 (Version None)
Quarter: 2010Q2

REPORT INFORMATION
  Report Type: 
  Country: None (occurrence: None)
  Receive Date: 20100428
  Receipt Date: 20100419
  Transmission Date: 20101027
  Serious: No
  Sender: FDA-Public Use
  Company Number: US-B.I. PHARMACEUTICALS,INC./RIDGEFIELD-2010-BP-04581BP

PATIENT
  Age: 50 Year
  Sex: Male

DRUGS (8)
  1. SPIRIVA [Suspect]
     Indication: CHRONIC OBSTRUCTIVE PULMONARY DISEASE
     Dosage: 18 MCG
     Route: 055
     Dates: start: 20070301
  2. MOBIC [Suspect]
     Indication: ARTHRITIS
     Route: 048
     Dates: start: 20100301
  3. LISINOPRIL [Concomitant]
     Indication: HYPERTENSION
  4. METFORMIN [Concomitant]
     Indication: DIABETES MELLITUS
  5. NEURONTIN [Concomitant]
     Indication: FIBROMYALGIA
  6. ADVAIR DISKUS 100/50 [Concomitant]
     Indication: CHRONIC OBSTRUCTIVE PULMONARY DISEASE
  7. MULTI-VITAMIN [Concomitant]
     Indication: SUPPLEMENTATION THERAPY
  8. ZINC [Concomitant]
     Indication: SUPPLEMENTATION THERAPY

REACTIONS (1)
  - BLOOD PRESSURE INCREASED [None]
